FAERS Safety Report 15475468 (Version 10)
Quarter: 2020Q3

REPORT INFORMATION
  Report Type: Report from Study
  Country: US (occurrence: US)
  Receive Date: 20181008
  Receipt Date: 20200820
  Transmission Date: 20201102
  Serious: Yes (Hospitalization)
  Sender: FDA-Public Use
  Company Number: US-ACTELION-A-US2018-169830

PATIENT
  Age: 73 Year
  Sex: Female
  Weight: 44.44 kg

DRUGS (9)
  1. VELETRI [Suspect]
     Active Substance: EPOPROSTENOL
     Dosage: 20 NG/KG, PER MIN
     Route: 042
  2. VELETRI [Suspect]
     Active Substance: EPOPROSTENOL
     Dosage: 21 NG/KG, PER MIN
     Route: 042
  3. SILDENAFIL CITRATE. [Suspect]
     Active Substance: SILDENAFIL CITRATE
     Indication: PRODUCT USED FOR UNKNOWN INDICATION
     Dosage: UNK
     Route: 065
  4. VELETRI [Suspect]
     Active Substance: EPOPROSTENOL
     Dosage: 15 NG/KG, PER MIN
     Route: 042
  5. VELETRI [Suspect]
     Active Substance: EPOPROSTENOL
     Dosage: 45 NG/KG, PER MIN
     Route: 042
  6. VELETRI [Suspect]
     Active Substance: EPOPROSTENOL
     Indication: PULMONARY HYPERTENSION
     Dosage: 35 NG/KG. PER MIN
     Route: 042
  7. VELETRI [Suspect]
     Active Substance: EPOPROSTENOL
     Dosage: 6 NG/KG, PER MIN
     Route: 042
  8. VELETRI [Suspect]
     Active Substance: EPOPROSTENOL
     Dosage: 25 NG/KG, PER MIN
     Route: 042
  9. VELETRI [Suspect]
     Active Substance: EPOPROSTENOL
     Dosage: 30 NG/KG, PER MIN
     Route: 042

REACTIONS (42)
  - Skin discolouration [Unknown]
  - Heart rate increased [Unknown]
  - Rotator cuff syndrome [Unknown]
  - Fatigue [Unknown]
  - Oedema peripheral [Unknown]
  - Hospitalisation [Unknown]
  - Dyspnoea exertional [Unknown]
  - Diarrhoea [Unknown]
  - Arthropathy [Unknown]
  - Rash [Unknown]
  - Retching [Unknown]
  - Device leakage [Unknown]
  - Back pain [Unknown]
  - Therapy non-responder [Unknown]
  - Nausea [Unknown]
  - Skin irritation [Unknown]
  - Catheter site erythema [Recovered/Resolved]
  - Catheter site irritation [Recovering/Resolving]
  - Tooth disorder [Unknown]
  - Dizziness [Unknown]
  - Erythema [Unknown]
  - Dry mouth [Unknown]
  - Aphonia [Unknown]
  - Constipation [Unknown]
  - Catheter site infection [Unknown]
  - Joint stiffness [Unknown]
  - Intervertebral disc disorder [Unknown]
  - Weight decreased [Unknown]
  - Catheter site pruritus [Unknown]
  - Catheter site discharge [Not Recovered/Not Resolved]
  - Catheter site pustule [Recovering/Resolving]
  - Pain in extremity [Unknown]
  - Musculoskeletal stiffness [Unknown]
  - Hypoaesthesia [Unknown]
  - Arthralgia [Unknown]
  - Sinusitis [Recovering/Resolving]
  - Malaise [Recovering/Resolving]
  - Headache [Unknown]
  - Catheter site pain [Unknown]
  - Dyspnoea [Unknown]
  - Chest discomfort [Unknown]
  - Palpitations [Unknown]

NARRATIVE: CASE EVENT DATE: 20181210
